FAERS Safety Report 25136133 (Version 1)
Quarter: 2025Q1

REPORT INFORMATION
  Report Type: Spontaneous
  Country: GB (occurrence: GB)
  Receive Date: 20250328
  Receipt Date: 20250328
  Transmission Date: 20250408
  Serious: Yes (Hospitalization)
  Sender: PTC THERAPEUTICS
  Company Number: GB-PTC THERAPEUTICS INC.-GB-2025PTC000308

PATIENT
  Age: 1 Year
  Sex: Male

DRUGS (1)
  1. ELADOCAGENE EXUPARVOVEC [Suspect]
     Active Substance: ELADOCAGENE EXUPARVOVEC
     Indication: Aromatic L-amino acid decarboxylase deficiency
     Route: 065
     Dates: start: 20250305, end: 20250305

REACTIONS (2)
  - Wound dehiscence [Unknown]
  - C-reactive protein increased [Recovering/Resolving]

NARRATIVE: CASE EVENT DATE: 20250301
